FAERS Safety Report 10025716 (Version 1)
Quarter: 2014Q1

REPORT INFORMATION
  Report Type: Spontaneous
  Country: SE (occurrence: None)
  Receive Date: 20140314
  Receipt Date: 20140314
  Transmission Date: 20141002
  Serious: Yes (Hospitalization)
  Sender: FDA-Public Use
  Company Number: SYM-2014-18335

PATIENT
  Age: 60 Year
  Sex: Female
  Weight: 77 kg

DRUGS (12)
  1. ACYCLOVIR [Suspect]
     Indication: MENINGITIS BACTERIAL
     Route: 042
  2. VALACYCLOVIR [Suspect]
     Indication: HERPES VIRUS INFECTION
  3. AMITRIPTYLINE  (AMITRIPTYLINE) (50 MILLIGRAM) (AMITRIPTYLINE) [Concomitant]
  4. CALCIUM +COLECALCIFEROL (CALCIUM D3/01483701/) (COLECALCIFEROL, CALCIUM) [Concomitant]
  5. ENLAPRIL (ENLAPRIL) (10 MILLIGRAM) (ENLAPRIL) [Concomitant]
  6. GABAPENTIN (GABAPENTIN) (600 MILLIGRAM) (GABAPENTIN) [Concomitant]
  7. METOPROLOL (METOPROLOL) (100 MILLIGRAM) (METOPROLOL) [Concomitant]
  8. METHENAMINE (METHENAMINE) (1 GRAM) (METHENAMINE) [Concomitant]
  9. FUROSEMIDE (FUROSEMIDE) (80 MILLIGRAM) (FUROSEMIDE) [Concomitant]
  10. VENLAFAXINE (VENLAFAXINE) (VENLAFAXINE) [Concomitant]
  11. MONTELUKAST (MONTELUKAST) (MONTELUKAST) [Concomitant]
  12. SALMETEROL/FLUTICASONE (SERETIDE) (FLUTICASONE PROPIONATE, SALMETEROL XINAFOATE) [Concomitant]

REACTIONS (1)
  - Neuropsychiatric syndrome [None]
